FAERS Safety Report 7248117-0 (Version None)
Quarter: 2011Q1

REPORT INFORMATION
  Report Type: 
  Country: None (occurrence: None)
  Receive Date: 20110127
  Receipt Date: 20110113
  Transmission Date: 20110831
  Serious: No
  Sender: FDA-Public Use
  Company Number: US-B.I. PHARMACEUTICALS,INC./RIDGEFIELD-2010-BP-13844BP

PATIENT
  Age: 69 Year
  Sex: Male

DRUGS (6)
  1. ADVAIR [Concomitant]
     Indication: CHRONIC OBSTRUCTIVE PULMONARY DISEASE
  2. SPIRIVA [Suspect]
     Indication: CHRONIC OBSTRUCTIVE PULMONARY DISEASE
     Dosage: 18 MCG
     Route: 055
     Dates: start: 20050101
  3. NASONEX [Concomitant]
  4. ALBUTEROL [Concomitant]
     Indication: PROPHYLAXIS
  5. ALLERGY MEDICINE [Concomitant]
     Indication: HYPERSENSITIVITY
  6. LORATADINE [Concomitant]

REACTIONS (2)
  - FEELING ABNORMAL [None]
  - DRUG INEFFECTIVE [None]
